FAERS Safety Report 23511119 (Version 1)
Quarter: 2024Q1

REPORT INFORMATION
  Report Type: Spontaneous
  Country: US (occurrence: US)
  Receive Date: 20240212
  Receipt Date: 20240212
  Transmission Date: 20240410
  Serious: Yes (Other)
  Sender: FDA-Public Use
  Company Number: US-CHEPLA-2024001678

PATIENT
  Age: 67 Year
  Sex: Female

DRUGS (4)
  1. HYDROXYUREA [Suspect]
     Active Substance: HYDROXYUREA
     Indication: Polycythaemia
  2. EZETIMIBE\SIMVASTATIN [Concomitant]
     Active Substance: EZETIMIBE\SIMVASTATIN
     Indication: Hyperlipidaemia
  3. GRANULOCYTE COLONY-STIMULATING FACTOR NOS [Concomitant]
     Active Substance: GRANULOCYTE COLONY-STIMULATING FACTOR NOS
     Indication: Leukopenia
     Dosage: REMAINED ON THIS TREATMENT FOR A DECADE
  4. DARBEPOETIN ALFA [Concomitant]
     Active Substance: DARBEPOETIN ALFA
     Indication: Leukopenia
     Dosage: REMAINED ON THIS TREATMENT FOR A DECADE

REACTIONS (2)
  - Mucosal inflammation [Unknown]
  - Drug ineffective [Unknown]
